FAERS Safety Report 20383496 (Version 1)
Quarter: 2022Q1

REPORT INFORMATION
  Report Type: Spontaneous
  Country: US (occurrence: None)
  Receive Date: 20220127
  Receipt Date: 20220127
  Transmission Date: 20220424
  Serious: Yes (Hospitalization)
  Sender: FDA-Public Use
  Company Number: None

PATIENT
  Age: 62 Year
  Sex: Female

DRUGS (2)
  1. CAPECITABINE [Suspect]
     Active Substance: CAPECITABINE
     Indication: Rectosigmoid cancer
     Dosage: 300MG TWICE DAILY ORAL?
     Route: 048
     Dates: start: 202110
  2. CAPECITABINE [Suspect]
     Active Substance: CAPECITABINE
     Indication: Rectosigmoid cancer
     Dosage: 1500MG TWICE DAILY ORAL?
     Route: 048
     Dates: start: 202110

REACTIONS (3)
  - Gastric disorder [None]
  - COVID-19 [None]
  - Weight decreased [None]

NARRATIVE: CASE EVENT DATE: 20220104
